FAERS Safety Report 7725405-2 (Version None)
Quarter: 2011Q3

REPORT INFORMATION
  Report Type: 
  Country: None (occurrence: None)
  Receive Date: 20110902
  Receipt Date: 20110830
  Transmission Date: 20111222
  Serious: Yes (Other)
  Sender: FDA-Public Use
  Company Number: US-PFIZER INC-2011203100

PATIENT
  Sex: Female

DRUGS (2)
  1. CHANTIX [Suspect]
     Dosage: UNK
     Dates: start: 20080901
  2. CHANTIX [Suspect]
     Dosage: UNK
     Dates: start: 20100901

REACTIONS (10)
  - ANXIETY [None]
  - INSOMNIA [None]
  - NIGHTMARE [None]
  - IMPAIRED DRIVING ABILITY [None]
  - HALLUCINATION [None]
  - MARITAL PROBLEM [None]
  - PARANOIA [None]
  - DEPRESSION [None]
  - ABNORMAL BEHAVIOUR [None]
  - IRRITABILITY [None]
